FAERS Safety Report 24819536 (Version 1)
Quarter: 2025Q1

REPORT INFORMATION
  Report Type: Spontaneous
  Country: US (occurrence: US)
  Receive Date: 20250108
  Receipt Date: 20250108
  Transmission Date: 20250409
  Serious: Yes (Other)
  Sender: TARO
  Company Number: US-TARO PHARMACEUTICALS USA INC.-2024TAR02919

PATIENT

DRUGS (2)
  1. IBUPROFEN [Suspect]
     Active Substance: IBUPROFEN
     Indication: Analgesic therapy
     Route: 065
  2. ENOXAPARIN [Concomitant]
     Active Substance: ENOXAPARIN
     Indication: Atrial thrombosis
     Route: 065

REACTIONS (7)
  - International normalised ratio abnormal [Unknown]
  - Haematemesis [Unknown]
  - Haemoglobin decreased [Unknown]
  - Hepatic function abnormal [Unknown]
  - Mucosal erosion [Unknown]
  - Gastritis [Unknown]
  - Gastrointestinal injury [Unknown]
